FAERS Safety Report 4962918-0 (Version None)
Quarter: 2006Q2

REPORT INFORMATION
  Report Type: 
  Country: None (occurrence: None)
  Receive Date: 20060405
  Receipt Date: 20060324
  Transmission Date: 20061013
  Serious: Yes (Death, Other)
  Sender: FDA-Public Use
  Company Number: GB-BRISTOL-MYERS SQUIBB COMPANY-13325923

PATIENT
  Age: 60 Year
  Sex: Male

DRUGS (6)
  1. KENALOG [Suspect]
     Indication: PLANTAR FASCIITIS
     Dates: start: 20051206, end: 20051206
  2. LIDOCAINE [Suspect]
     Indication: PLANTAR FASCIITIS
     Dates: start: 20051206, end: 20051206
  3. ALVERINE CITRATE [Concomitant]
     Indication: IRRITABLE BOWEL SYNDROME
     Route: 048
     Dates: start: 20050819
  4. ISPAGHULA [Concomitant]
     Indication: CONSTIPATION
     Route: 048
     Dates: start: 20050729
  5. OMEPRAZOLE [Concomitant]
     Indication: GASTROOESOPHAGEAL REFLUX DISEASE
     Route: 048
     Dates: start: 20050729
  6. TAMSULOSIN HCL [Concomitant]
     Indication: BENIGN PROSTATIC HYPERPLASIA
     Route: 048
     Dates: start: 20050914

REACTIONS (3)
  - CHOKING [None]
  - CIRCULATORY COLLAPSE [None]
  - PARAESTHESIA [None]
